FAERS Safety Report 25414738 (Version 1)
Quarter: 2025Q2

REPORT INFORMATION
  Report Type: Spontaneous
  Country: US (occurrence: US)
  Receive Date: 20250609
  Receipt Date: 20250609
  Transmission Date: 20250716
  Serious: No
  Sender: STALLERGENES
  Company Number: US-STALCOR-2025-AER-01067

PATIENT
  Age: 57 Year
  Sex: Male
  Weight: 83.9 kg

DRUGS (37)
  1. CYNODON DACTYLON POLLEN [Suspect]
     Active Substance: CYNODON DACTYLON POLLEN
     Indication: Seasonal allergy
     Route: 058
     Dates: start: 20190502
  2. CYNODON DACTYLON POLLEN [Suspect]
     Active Substance: CYNODON DACTYLON POLLEN
     Route: 058
     Dates: start: 20250102
  3. WHITE ASH [Suspect]
     Active Substance: FRAXINUS AMERICANA POLLEN
     Indication: Seasonal allergy
     Route: 058
     Dates: start: 20190502
  4. WHITE ASH [Suspect]
     Active Substance: FRAXINUS AMERICANA POLLEN
     Route: 058
     Dates: start: 20250102
  5. SORREL/DOCK MIX [Suspect]
     Active Substance: RUMEX ACETOSELLA WHOLE\RUMEX CRISPUS
     Indication: Seasonal allergy
     Route: 058
     Dates: start: 20190502
  6. SORREL/DOCK MIX [Suspect]
     Active Substance: RUMEX ACETOSELLA WHOLE\RUMEX CRISPUS
     Route: 058
     Dates: start: 20250102
  7. DOG EPITHELIA [Suspect]
     Active Substance: CANIS LUPUS FAMILIARIS SKIN
     Indication: Allergy to animal
     Route: 058
     Dates: start: 20190502
  8. DOG EPITHELIA [Suspect]
     Active Substance: CANIS LUPUS FAMILIARIS SKIN
     Route: 058
     Dates: start: 20250102
  9. ENGLISH PLANTAIN [Suspect]
     Active Substance: PLANTAGO LANCEOLATA POLLEN
     Indication: Seasonal allergy
     Route: 058
     Dates: start: 20190502
  10. ENGLISH PLANTAIN [Suspect]
     Active Substance: PLANTAGO LANCEOLATA POLLEN
     Route: 058
     Dates: start: 20250102
  11. WHITE HICKORY [Suspect]
     Active Substance: CARYA TOMENTOSA POLLEN
     Indication: Seasonal allergy
     Route: 058
     Dates: start: 20190502
  12. WHITE HICKORY [Suspect]
     Active Substance: CARYA TOMENTOSA POLLEN
     Route: 058
     Dates: start: 20250102
  13. JOHNSON GRASS [Suspect]
     Active Substance: SORGHUM HALEPENSE POLLEN
     Indication: Seasonal allergy
     Route: 058
     Dates: start: 20190502
  14. JOHNSON GRASS [Suspect]
     Active Substance: SORGHUM HALEPENSE POLLEN
     Route: 058
     Dates: start: 20250102
  15. LAMB QUARTERS [Suspect]
     Active Substance: CHENOPODIUM ALBUM POLLEN
     Indication: Seasonal allergy
     Route: 058
     Dates: start: 20190502
  16. LAMB QUARTERS [Suspect]
     Active Substance: CHENOPODIUM ALBUM POLLEN
     Route: 058
     Dates: start: 20250102
  17. NETTLE [Suspect]
     Active Substance: URTICA DIOICA POLLEN
     Indication: Seasonal allergy
     Route: 058
     Dates: start: 20190502
  18. NETTLE [Suspect]
     Active Substance: URTICA DIOICA POLLEN
     Route: 058
     Dates: start: 20250102
  19. QUERCUS ALBA POLLEN\QUERCUS RUBRA POLLEN\QUERCUS VELUTINA POLLEN [Suspect]
     Active Substance: QUERCUS ALBA POLLEN\QUERCUS RUBRA POLLEN\QUERCUS VELUTINA POLLEN
     Indication: Seasonal allergy
     Route: 058
     Dates: start: 20190502
  20. QUERCUS ALBA POLLEN\QUERCUS RUBRA POLLEN\QUERCUS VELUTINA POLLEN [Suspect]
     Active Substance: QUERCUS ALBA POLLEN\QUERCUS RUBRA POLLEN\QUERCUS VELUTINA POLLEN
     Route: 058
     Dates: start: 20250102
  21. ROUGH PIGWEED [Suspect]
     Active Substance: AMARANTHUS RETROFLEXUS POLLEN
     Indication: Seasonal allergy
     Route: 058
     Dates: start: 20190502
  22. ROUGH PIGWEED [Suspect]
     Active Substance: AMARANTHUS RETROFLEXUS POLLEN
     Route: 058
     Dates: start: 20250102
  23. RIVER BIRCH POLLEN [Suspect]
     Active Substance: BETULA NIGRA POLLEN
     Indication: Seasonal allergy
     Route: 058
     Dates: start: 20190502
  24. RIVER BIRCH POLLEN [Suspect]
     Active Substance: BETULA NIGRA POLLEN
     Route: 058
     Dates: start: 20250102
  25. DERMATOPHAGOIDES FARINAE\DERMATOPHAGOIDES PTERONYSSINUS [Suspect]
     Active Substance: DERMATOPHAGOIDES FARINAE\DERMATOPHAGOIDES PTERONYSSINUS
     Indication: Dust allergy
     Route: 058
     Dates: start: 20190502
  26. DERMATOPHAGOIDES FARINAE\DERMATOPHAGOIDES PTERONYSSINUS [Suspect]
     Active Substance: DERMATOPHAGOIDES FARINAE\DERMATOPHAGOIDES PTERONYSSINUS
     Route: 058
     Dates: start: 20250102
  27. AGROSTIS GIGANTEA POLLEN\DACTYLIS GLOMERATA POLLEN\PHLEUM PRATENSE POL [Suspect]
     Active Substance: AGROSTIS GIGANTEA POLLEN\DACTYLIS GLOMERATA POLLEN\PHLEUM PRATENSE POLLEN\POA PRATENSIS POLLEN
     Indication: Seasonal allergy
     Route: 058
     Dates: start: 20190502
  28. AGROSTIS GIGANTEA POLLEN\DACTYLIS GLOMERATA POLLEN\PHLEUM PRATENSE POL [Suspect]
     Active Substance: AGROSTIS GIGANTEA POLLEN\DACTYLIS GLOMERATA POLLEN\PHLEUM PRATENSE POLLEN\POA PRATENSIS POLLEN
     Route: 058
     Dates: start: 20250102
  29. MAPLE BOX ELDER POLLEN MIX [Suspect]
     Active Substance: ACER NEGUNDO POLLEN\ACER SACCHARUM POLLEN
     Indication: Seasonal allergy
     Route: 058
     Dates: start: 20190502
  30. MAPLE BOX ELDER POLLEN MIX [Suspect]
     Active Substance: ACER NEGUNDO POLLEN\ACER SACCHARUM POLLEN
     Route: 058
     Dates: start: 20250102
  31. RAGWEED MIXTURE [Suspect]
     Active Substance: AMBROSIA ARTEMISIIFOLIA POLLEN\AMBROSIA BIDENTATA POLLEN\AMBROSIA PSILOSTACHYA POLLEN\AMBROSIA TRIFI
     Indication: Seasonal allergy
     Route: 058
     Dates: start: 20190502
  32. RAGWEED MIXTURE [Suspect]
     Active Substance: AMBROSIA ARTEMISIIFOLIA POLLEN\AMBROSIA BIDENTATA POLLEN\AMBROSIA PSILOSTACHYA POLLEN\AMBROSIA TRIFI
     Route: 058
     Dates: start: 20250102
  33. ALTERNARIA [Suspect]
     Active Substance: ALTERNARIA ALTERNATA
     Indication: Seasonal allergy
     Route: 058
     Dates: start: 20190502
  34. ALTERNARIA [Suspect]
     Active Substance: ALTERNARIA ALTERNATA
     Indication: Allergy to animal
     Route: 058
     Dates: start: 20250102
  35. ALTERNARIA [Suspect]
     Active Substance: ALTERNARIA ALTERNATA
     Indication: Dust allergy
  36. CAT HAIR [Suspect]
     Active Substance: FELIS CATUS HAIR
     Indication: Allergy to animal
     Route: 058
     Dates: start: 20190502
  37. CAT HAIR [Suspect]
     Active Substance: FELIS CATUS HAIR
     Route: 058
     Dates: start: 20250102

REACTIONS (2)
  - Eye swelling [Recovered/Resolved]
  - Eye pruritus [Recovered/Resolved]

NARRATIVE: CASE EVENT DATE: 20250102
